FAERS Safety Report 11792368 (Version 1)
Quarter: 2015Q4

REPORT INFORMATION
  Report Type: Spontaneous
  Country: DE (occurrence: DE)
  Receive Date: 20151202
  Receipt Date: 20151202
  Transmission Date: 20160305
  Serious: Yes (Other)
  Sender: FDA-Public Use
  Company Number: DE-AMGEN-DEUSP2015107826

PATIENT
  Sex: Male

DRUGS (1)
  1. XGEVA [Suspect]
     Active Substance: DENOSUMAB
     Indication: PROSTATE CANCER
     Dosage: UNK, QMO
     Route: 065
     Dates: start: 2013

REACTIONS (6)
  - Facial pain [Unknown]
  - Lip pain [Unknown]
  - Pain in jaw [Not Recovered/Not Resolved]
  - Trigeminal neuralgia [Unknown]
  - Osteonecrosis of jaw [Unknown]
  - Diarrhoea [Unknown]
